FAERS Safety Report 16947224 (Version 1)
Quarter: 2019Q4

REPORT INFORMATION
  Report Type: Spontaneous
  Country: US (occurrence: US)
  Receive Date: 20191022
  Receipt Date: 20191022
  Transmission Date: 20200122
  Serious: No
  Sender: FDA-Public Use
  Company Number: US-BECTON DICKINSON-2019BDN00041

PATIENT
  Age: 37 Year
  Sex: Male
  Weight: 91 kg

DRUGS (1)
  1. CHLORAPREP ONE-STEP FREPP [Suspect]
     Active Substance: CHLORHEXIDINE GLUCONATE\ISOPROPYL ALCOHOL
     Indication: INFECTION PROPHYLAXIS
     Dosage: UNK
     Route: 061
     Dates: start: 20190117, end: 20190117

REACTIONS (2)
  - Product package associated injury [Recovered/Resolved]
  - Wound [Unknown]

NARRATIVE: CASE EVENT DATE: 20190117
